FAERS Safety Report 16305163 (Version 1)
Quarter: 2019Q2

REPORT INFORMATION
  Report Type: Spontaneous
  Country: AU (occurrence: AU)
  Receive Date: 20190513
  Receipt Date: 20190513
  Transmission Date: 20190711
  Serious: Yes (Other)
  Sender: FDA-Public Use
  Company Number: AU-SA-2019SA130200

PATIENT
  Sex: Female

DRUGS (2)
  1. SONIDEGIB [Suspect]
     Active Substance: SONIDEGIB
     Indication: TRIPLE NEGATIVE BREAST CANCER
     Dosage: 400 MG, QD
     Route: 048
  2. DOCETAXEL. [Suspect]
     Active Substance: DOCETAXEL
     Indication: TRIPLE NEGATIVE BREAST CANCER
     Dosage: 75 MG/M2, TIW, 21-DAY CYCLES
     Route: 042

REACTIONS (2)
  - Malignant neoplasm progression [Unknown]
  - Triple negative breast cancer [Unknown]
